FAERS Safety Report 15325643 (Version 1)
Quarter: 2018Q3

REPORT INFORMATION
  Report Type: Spontaneous
  Country: US (occurrence: US)
  Receive Date: 20180822
  Receipt Date: 20180822
  Transmission Date: 20181010
  Serious: No
  Sender: FDA-Public Use
  Company Number: None

PATIENT
  Age: 52 Year
  Sex: Female

DRUGS (1)
  1. WAYLIVRA [Suspect]
     Active Substance: VOLANESORSEN SODIUM
     Indication: HYPERCHYLOMICRONAEMIA

REACTIONS (5)
  - Injection site bruising [None]
  - Rash macular [None]
  - Injection site pain [None]
  - Injection site induration [None]
  - Injection site reaction [None]
